FAERS Safety Report 7688523-3 (Version None)
Quarter: 2011Q3

REPORT INFORMATION
  Report Type: 
  Country: None (occurrence: None)
  Receive Date: 20110817
  Receipt Date: 20110805
  Transmission Date: 20111222
  Serious: Yes (Hospitalization)
  Sender: FDA-Public Use
  Company Number: US-SANOFI-AVENTIS-2011SA044480

PATIENT
  Age: 75 Year
  Sex: Female
  Weight: 117 kg

DRUGS (6)
  1. DRONEDARONE HCL [Suspect]
     Indication: ATRIAL FIBRILLATION
     Route: 048
     Dates: start: 20110310
  2. METOPROLOL TARTRATE [Concomitant]
  3. WARFARIN SODIUM [Concomitant]
     Dosage: 35MG WEEKLY
  4. DILTIAZEM [Concomitant]
  5. NSAID'S [Concomitant]
  6. ZETIA [Concomitant]
     Dates: end: 20110321

REACTIONS (1)
  - PULMONARY EMBOLISM [None]
